FAERS Safety Report 10023701 (Version 1)
Quarter: 2014Q1

REPORT INFORMATION
  Report Type: Report from Study
  Country: TW (occurrence: None)
  Receive Date: 20140109
  Receipt Date: 20140109
  Transmission Date: 20141002
  Serious: Yes (Hospitalization)
  Sender: FDA-Public Use
  Company Number: JP-2012-15332

PATIENT
  Age: 88 Year
  Sex: Female
  Weight: 47 kg

DRUGS (12)
  1. PLETAAL [Suspect]
     Indication: INTERMITTENT CLAUDICATION
     Dosage: BLINDED, INFORMATION WITHHELD
     Dates: start: 20110728
  2. ZANIDIP [Concomitant]
  3. SENNAPUR [Concomitant]
  4. PROPRANOLOL [Concomitant]
  5. NS [Concomitant]
  6. MAGNESIUM OXIDE [Concomitant]
  7. MEVALOTIN [Concomitant]
  8. ISOBIDE [Concomitant]
  9. FLUTAFIN [Concomitant]
  10. CO-DIOVAN [Concomitant]
  11. BOKEY [Concomitant]
  12. ANDIZA [Concomitant]

REACTIONS (5)
  - Gait disturbance [None]
  - Dizziness [None]
  - Vertebrobasilar insufficiency [None]
  - Hyperglycaemia [None]
  - Asthenia [None]
